FAERS Safety Report 24671130 (Version 1)
Quarter: 2024Q4

REPORT INFORMATION
  Report Type: Spontaneous
  Country: US (occurrence: None)
  Receive Date: 20241127
  Receipt Date: 20241127
  Transmission Date: 20250114
  Serious: Yes (Hospitalization)
  Sender: Public
  Company Number: None

PATIENT
  Sex: Female

DRUGS (5)
  1. ENVARSUS XR [Suspect]
     Active Substance: TACROLIMUS
     Indication: Renal transplant
     Dosage: FREQUENCY : DAILY;?
     Route: 048
     Dates: start: 202006
  2. ENVARSUS XR [Suspect]
     Active Substance: TACROLIMUS
     Indication: Immunodeficiency
  3. ENVARSUS XR [Suspect]
     Active Substance: TACROLIMUS
     Indication: Liver transplant
  4. ENVARSUS XR [Suspect]
     Active Substance: TACROLIMUS
     Indication: Hepatic infection
  5. MYCOPHENOLATE MOFETIL [Concomitant]
     Active Substance: MYCOPHENOLATE MOFETIL

REACTIONS (4)
  - Chills [None]
  - Pyrexia [None]
  - Nausea [None]
  - Vomiting [None]
